FAERS Safety Report 15257393 (Version 1)
Quarter: 2018Q3

REPORT INFORMATION
  Report Type: Spontaneous
  Country: US (occurrence: US)
  Receive Date: 20180718
  Receipt Date: 20180718
  Transmission Date: 20181010
  Serious: Yes (Hospitalization)
  Sender: FDA-Public Use
  Company Number: None

PATIENT
  Age: 63 Year
  Sex: Female

DRUGS (13)
  1. FORTEO [Suspect]
     Active Substance: TERIPARATIDE
     Dosage: ?          OTHER FREQUENCY:UNK;?
  2. TELMISARTAN. [Concomitant]
     Active Substance: TELMISARTAN
  3. TRULICITY [Concomitant]
     Active Substance: DULAGLUTIDE
  4. NOVOLOG [Concomitant]
     Active Substance: INSULIN ASPART
  5. BD PEN NEEDLE MS [Concomitant]
  6. LANTUS [Concomitant]
     Active Substance: INSULIN GLARGINE
  7. CONTOUR TES NEXT [Concomitant]
  8. KETOCONAZOLE. [Concomitant]
     Active Substance: KETOCONAZOLE
  9. METOPROLOL. [Concomitant]
     Active Substance: METOPROLOL
  10. DULOXETINE. [Concomitant]
     Active Substance: DULOXETINE
  11. PRAVASTATIN. [Concomitant]
     Active Substance: PRAVASTATIN
  12. FUROSEMIDE. [Concomitant]
     Active Substance: FUROSEMIDE
  13. LEVOTHYROXIN [Concomitant]
     Active Substance: LEVOTHYROXINE

REACTIONS (1)
  - Hospitalisation [None]

NARRATIVE: CASE EVENT DATE: 20180717
